FAERS Safety Report 6219468-3 (Version None)
Quarter: 2009Q2

REPORT INFORMATION
  Report Type: 
  Country: None (occurrence: None)
  Receive Date: 20090609
  Receipt Date: 20090529
  Transmission Date: 20091009
  Serious: Yes (Disabling)
  Sender: FDA-Public Use
  Company Number: PHEH2009US04631

PATIENT
  Sex: Female
  Weight: 57.143 kg

DRUGS (5)
  1. RECLAST [Suspect]
     Indication: OSTEOPOROSIS POSTMENOPAUSAL
     Dosage: 5 MG EVERY YEAR
     Dates: start: 20090504
  2. BENADRYL ^PARKE DAVIS^                  /ISR/ [Concomitant]
  3. AMBIEN [Concomitant]
  4. ASCORBIC ACID [Concomitant]
  5. VITAMIN D [Concomitant]

REACTIONS (16)
  - ABASIA [None]
  - ARTHRALGIA [None]
  - ARTHROPATHY [None]
  - ASTHENIA [None]
  - BEDRIDDEN [None]
  - BURNING SENSATION [None]
  - CHILLS [None]
  - FEELING HOT [None]
  - GINGIVAL ERYTHEMA [None]
  - GINGIVAL SWELLING [None]
  - INFLUENZA LIKE ILLNESS [None]
  - MUSCLE SPASMS [None]
  - MYALGIA [None]
  - PAIN IN EXTREMITY [None]
  - PYREXIA [None]
  - TENOSYNOVITIS [None]
